FAERS Safety Report 9202861 (Version 2)
Quarter: 2014Q1

REPORT INFORMATION
  Report Type: Report from Study
  Country: JP (occurrence: JP)
  Receive Date: 20130402
  Receipt Date: 20140219
  Transmission Date: 20141002
  Serious: Yes (Hospitalization)
  Sender: FDA-Public Use
  Company Number: JP-PFIZER INC-2012209271

PATIENT
  Age: 41 Year
  Sex: Female
  Weight: 68.2 kg

DRUGS (16)
  1. XALKORI [Suspect]
     Indication: NON-SMALL CELL LUNG CANCER
     Dosage: 250 MG, 2X/DAY
     Route: 048
     Dates: start: 20120612, end: 20120731
  2. ADOAIR [Concomitant]
     Dosage: 500 UG, 2X/DAY
     Route: 061
  3. GASTER D [Concomitant]
     Dosage: 20 MG, 1X/DAY
     Route: 048
     Dates: end: 20120808
  4. KIPRES [Concomitant]
     Dosage: 10 MG, 1X/DAY
     Route: 048
  5. MUCODYNE [Concomitant]
     Dosage: 250 MG, 3X/DAY
     Route: 048
     Dates: end: 20120711
  6. MUCOSOLVAN [Concomitant]
     Dosage: 45 MG, 1X/DAY
     Route: 048
     Dates: end: 20120816
  7. NAUZELIN [Concomitant]
     Dosage: 10 MG, 3X/DAY
     Route: 048
     Dates: start: 20120612, end: 20120703
  8. NAIXAN [Concomitant]
     Dosage: 100 MG, 3X/DAY
     Route: 048
     Dates: start: 20120613, end: 20120703
  9. MIYA BM [Concomitant]
     Dosage: 3X/DAY
     Route: 048
     Dates: start: 20120617, end: 20120711
  10. GASMOTIN [Concomitant]
     Dosage: 5 MG, 3X/DAY
     Route: 048
     Dates: start: 20120617, end: 20120703
  11. PURSENNID [Concomitant]
     Dosage: 24 MG, 1X/DAY
     Route: 048
     Dates: start: 20120620, end: 20120712
  12. THEODUR [Concomitant]
     Dosage: 200 MG, 2X/DAY
     Route: 048
     Dates: start: 20120702, end: 20120711
  13. LASIX [Concomitant]
     Dosage: 20 MG DAILY
     Route: 048
     Dates: start: 20120814, end: 20120907
  14. LASIX [Concomitant]
     Dosage: 20 MG, 2X/DAY
     Route: 048
     Dates: start: 20120914, end: 20130214
  15. LASIX [Concomitant]
     Dosage: 20 MG, 3X/DAY
     Route: 048
     Dates: start: 20130215, end: 20130313
  16. LASIX [Concomitant]
     Dosage: 100 MG (40MG, 40MG AND 20 MG) DAILY
     Route: 048
     Dates: start: 20130314, end: 20130318

REACTIONS (2)
  - Radiation pneumonitis [Recovered/Resolved with Sequelae]
  - Pneumonia [Recovering/Resolving]
